FAERS Safety Report 7759344-8 (Version None)
Quarter: 2011Q3

REPORT INFORMATION
  Report Type: 
  Country: None (occurrence: None)
  Receive Date: 20110919
  Receipt Date: 20110908
  Transmission Date: 20111222
  Serious: Yes (Other)
  Sender: FDA-Public Use
  Company Number: CA-JNJFOC-20110904404

PATIENT
  Sex: Female

DRUGS (7)
  1. METHOTREXATE [Concomitant]
  2. HYDROCHLOROTHIAZIDE [Concomitant]
  3. OMEPRAZOLE [Concomitant]
  4. SIMPONI [Suspect]
     Indication: RHEUMATOID ARTHRITIS
     Route: 058
     Dates: start: 20100721
  5. SYNTHROID [Concomitant]
  6. ACTONEL [Concomitant]
  7. FOLIC ACID [Concomitant]

REACTIONS (2)
  - URINARY TRACT INFECTION [None]
  - TOOTH ABSCESS [None]
